FAERS Safety Report 9188947 (Version 2)
Quarter: 2013Q2

REPORT INFORMATION
  Report Type: Report from Study
  Country: FR (occurrence: FR)
  Receive Date: 20130326
  Receipt Date: 20130510
  Transmission Date: 20140414
  Serious: Yes (Life-Threatening, Disabling, Other)
  Sender: FDA-Public Use
  Company Number: FR-009507513-1303FRA010185

PATIENT
  Age: 58 Year
  Sex: Female
  Weight: 81 kg

DRUGS (5)
  1. CASPOFUNGIN ACETATE [Suspect]
     Dosage: 50 MG, QD
     Route: 042
     Dates: start: 20130313
  2. FLAGYL [Concomitant]
     Indication: CLOSTRIDIUM DIFFICILE INFECTION
     Dosage: 500 MG, QD
     Route: 042
     Dates: start: 20130313, end: 20130323
  3. TIENAM [Concomitant]
     Indication: PNEUMONIA
     Dosage: 1000 MG, QD
     Route: 042
     Dates: start: 20130313, end: 20130323
  4. VANCOMYCIN [Concomitant]
     Indication: PNEUMONIA
     Dosage: 3000 MG, QD
     Route: 042
     Dates: start: 20130314, end: 20130317
  5. VANCOMYCIN [Concomitant]
     Dosage: 2000 MG, QD
     Route: 042
     Dates: start: 20130317, end: 20130317

REACTIONS (7)
  - Acute respiratory failure [Recovered/Resolved]
  - Renal failure acute [Recovered/Resolved]
  - Venoocclusive liver disease [Not Recovered/Not Resolved]
  - Pseudomembranous colitis [Recovered/Resolved with Sequelae]
  - Colectomy [Recovered/Resolved]
  - Sepsis [Recovered/Resolved]
  - Staphylococcal sepsis [Recovered/Resolved]
